FAERS Safety Report 20198697 (Version 1)
Quarter: 2021Q4

REPORT INFORMATION
  Report Type: Spontaneous
  Country: US (occurrence: US)
  Receive Date: 20211217
  Receipt Date: 20211217
  Transmission Date: 20220303
  Serious: No
  Sender: FDA-Public Use
  Company Number: US-GLENMARK PHARMACEUTICALS-2021GMK068239

PATIENT

DRUGS (1)
  1. ZONISAMIDE [Suspect]
     Active Substance: ZONISAMIDE
     Indication: Seizure
     Dosage: UNK
     Route: 048
     Dates: start: 20200301

REACTIONS (1)
  - Illness [Unknown]

NARRATIVE: CASE EVENT DATE: 20211004
